FAERS Safety Report 5918817-0 (Version None)
Quarter: 2008Q4

REPORT INFORMATION
  Report Type: 
  Country: None (occurrence: None)
  Receive Date: 20081015
  Receipt Date: 20081001
  Transmission Date: 20090506
  Serious: Yes (Hospitalization)
  Sender: FDA-Public Use
  Company Number: CA-AMGEN-QUU303713

PATIENT
  Sex: Male

DRUGS (4)
  1. ENBREL [Suspect]
     Indication: PSORIASIS
     Route: 058
     Dates: start: 20080524, end: 20080614
  2. ENBREL [Suspect]
     Indication: PSORIATIC ARTHROPATHY
  3. METHOTREXATE SODIUM [Suspect]
     Dates: start: 20070701, end: 20080611
  4. CELEBREX [Concomitant]

REACTIONS (3)
  - CHOLELITHIASIS [None]
  - HEADACHE [None]
  - HEPATITIS [None]
